FAERS Safety Report 15247777 (Version 4)
Quarter: 2018Q3

REPORT INFORMATION
  Report Type: Spontaneous
  Country: GB (occurrence: GB)
  Receive Date: 20180807
  Receipt Date: 20180917
  Transmission Date: 20181010
  Serious: Yes (Hospitalization, Other)
  Sender: FDA-Public Use
  Company Number: GB-AUROBINDO-AUR-APL-2018-040507

PATIENT
  Age: 66 Year
  Sex: Male

DRUGS (8)
  1. DULOXETINE. [Suspect]
     Active Substance: DULOXETINE
     Indication: PRODUCT USED FOR UNKNOWN INDICATION
  2. LERCANIDIPINE [Suspect]
     Active Substance: LERCANIDIPINE
     Indication: HYPERTENSION
     Dosage: 1.2 GRAM, IN TOTAL
     Route: 048
  3. QUETIAPINE. [Suspect]
     Active Substance: QUETIAPINE
     Indication: PRODUCT USED FOR UNKNOWN INDICATION
  4. RAMIPRIL. [Suspect]
     Active Substance: RAMIPRIL
     Indication: HYPERTENSION
     Dosage: 280 MG, TOTAL ; IN TOTAL
     Route: 048
  5. RAMIPRIL. [Suspect]
     Active Substance: RAMIPRIL
     Indication: PRODUCT USED FOR UNKNOWN INDICATION
     Dosage: 280 MILLIGRAM
  6. LERCANIDIPINE [Suspect]
     Active Substance: LERCANIDIPINE
     Indication: PRODUCT USED FOR UNKNOWN INDICATION
  7. QUETIAPINE. [Suspect]
     Active Substance: QUETIAPINE
     Indication: DEPRESSION
     Dosage: 3 GRAM, IN TOTAL
     Route: 048
  8. DULOXETINE. [Suspect]
     Active Substance: DULOXETINE
     Indication: DEPRESSION
     Dosage: 420 MILLIGRAM, IN TOTAL
     Route: 048

REACTIONS (9)
  - Overdose [Recovering/Resolving]
  - Somnolence [Recovering/Resolving]
  - Urinary retention [Recovering/Resolving]
  - Intentional overdose [Unknown]
  - Lethargy [Recovered/Resolved]
  - Toxicity to various agents [Unknown]
  - Bradycardia [Recovering/Resolving]
  - Anuria [Recovering/Resolving]
  - Hypotension [Recovering/Resolving]
